FAERS Safety Report 9777500 (Version 2)
Quarter: 2013Q4

REPORT INFORMATION
  Report Type: Report from Study
  Country: US (occurrence: US)
  Receive Date: 20131221
  Receipt Date: 20131221
  Transmission Date: 20140711
  Serious: Yes (Death, Other)
  Sender: FDA-Public Use
  Company Number: US-MILLENNIUM PHARMACEUTICALS, INC.-2013TUS003128

PATIENT
  Age: 74 Year
  Sex: Male
  Weight: 115.9 kg

DRUGS (13)
  1. BLINDED ALLOPURINOL [Suspect]
     Indication: HYPERURICAEMIA
     Dosage: UNK, QD
     Route: 048
     Dates: start: 20110310, end: 20110327
  2. BLINDED FEBUXOSTAT [Suspect]
     Indication: HYPERURICAEMIA
     Dosage: UNK, QD
     Route: 048
     Dates: start: 20110310, end: 20110327
  3. SIMVASTATIN [Concomitant]
     Indication: HYPERLIPIDAEMIA
     Dosage: 40 MG, QD
     Route: 048
     Dates: start: 1995
  4. TAMSULOSIN [Concomitant]
     Indication: BENIGN PROSTATIC HYPERPLASIA
     Dosage: 0.4 MG, QD
     Route: 048
     Dates: start: 2005
  5. SPIRONOLACTONE [Concomitant]
     Indication: HYPERTENSION
     Dosage: 25 MG, QD
     Route: 048
     Dates: start: 1993
  6. IBUPROFEN [Concomitant]
     Indication: HEADACHE
     Dosage: 800 MG, PRN
     Route: 048
     Dates: start: 1985
  7. MUCINEX [Concomitant]
     Indication: SEASONAL ALLERGY
     Dosage: 600 MG, QD
     Route: 048
     Dates: start: 2006
  8. SERTRALINE [Concomitant]
     Indication: DEPRESSION
     Dosage: 100 MG, QD
     Route: 048
     Dates: start: 2000
  9. GLUCOPHAGE [Concomitant]
     Indication: TYPE 2 DIABETES MELLITUS
     Dosage: 500 MG, BID
     Route: 048
     Dates: start: 1993
  10. CARVEDILOL [Concomitant]
     Indication: CARDIAC FAILURE CONGESTIVE
     Dosage: 6.25 MG, QD
     Route: 048
     Dates: start: 1993
  11. CARVEDILOL [Concomitant]
     Indication: HYPERTENSION
  12. SUCRALFATE [Concomitant]
     Indication: GASTRITIS
     Dosage: 1 G, TID
     Route: 048
     Dates: start: 20110302
  13. CLOPIDOGREL [Concomitant]
     Indication: CARDIAC FAILURE CONGESTIVE
     Dosage: 75 MG, QD
     Route: 048
     Dates: start: 20110501

REACTIONS (2)
  - Death [Fatal]
  - Oropharyngeal cancer [Fatal]
